FAERS Safety Report 21275363 (Version 1)
Quarter: 2022Q3

REPORT INFORMATION
  Report Type: Spontaneous
  Country: NO (occurrence: NO)
  Receive Date: 20220831
  Receipt Date: 20220831
  Transmission Date: 20221027
  Serious: Yes (Hospitalization)
  Sender: FDA-Public Use
  Company Number: NO-NALPROPION PHARMACEUTICALS INC.-NO-2022CUR022737

PATIENT
  Age: 63 Year
  Sex: Male

DRUGS (1)
  1. BUPROPION HYDROCHLORIDE\NALTREXONE HYDROCHLORIDE [Suspect]
     Active Substance: BUPROPION HYDROCHLORIDE\NALTREXONE HYDROCHLORIDE
     Indication: Overweight
     Dosage: 2 DF, 1 IN 12 HR
     Route: 065
     Dates: start: 20220709, end: 20220808

REACTIONS (7)
  - White blood cell count increased [Recovering/Resolving]
  - Dyspnoea [Recovering/Resolving]
  - Prerenal failure [Recovering/Resolving]
  - Skin exfoliation [Recovering/Resolving]
  - C-reactive protein increased [Recovering/Resolving]
  - Chills [Recovering/Resolving]
  - Rash macular [Recovering/Resolving]

NARRATIVE: CASE EVENT DATE: 20220803
